FAERS Safety Report 4875074-4 (Version None)
Quarter: 2006Q1

REPORT INFORMATION
  Report Type: 
  Country: None (occurrence: None)
  Receive Date: 20060104
  Receipt Date: 20051221
  Transmission Date: 20060701
  Serious: Yes (Hospitalization)
  Sender: FDA-Public Use
  Company Number: 2005RR-01386

PATIENT
  Age: 92 Year
  Sex: Female

DRUGS (5)
  1. ETODOLAC [Suspect]
     Dosage: 300 MG QD ORAL
     Route: 048
     Dates: end: 20051113
  2. ASPIRIN [Suspect]
     Dosage: 75 MG QD ORAL
     Route: 048
     Dates: end: 20051113
  3. TERBINAFINE HCL [Concomitant]
  4. FLUOXETINE [Concomitant]
  5. CALCICHEW [Concomitant]

REACTIONS (3)
  - HIATUS HERNIA [None]
  - MALLORY-WEISS SYNDROME [None]
  - OESOPHAGITIS [None]
